FAERS Safety Report 11176754 (Version 1)
Quarter: 2015Q2

REPORT INFORMATION
  Report Type: Spontaneous
  Country: US (occurrence: None)
  Receive Date: 20150609
  Receipt Date: 20150609
  Transmission Date: 20150821
  Serious: Yes (Hospitalization)
  Sender: FDA-Public Use
  Company Number: None

PATIENT
  Age: 69 Year
  Sex: Male

DRUGS (9)
  1. ZYTIGA [Suspect]
     Active Substance: ABIRATERONE ACETATE
     Indication: PROSTATE CANCER
     Dosage: 1000 MG (4, 250 MG TABS)
     Route: 048
     Dates: start: 20150522
  2. DOXYCYLINE HYCLATE [Concomitant]
     Active Substance: DOXYCYCLINE HYCLATE
  3. SIMVASTATIN. [Concomitant]
     Active Substance: SIMVASTATIN
  4. METOPROLOL [Concomitant]
     Active Substance: METOPROLOL
  5. OXYCODONE/APAP [Concomitant]
     Active Substance: ACETAMINOPHEN\OXYCODONE HYDROCHLORIDE
  6. ONDANSETRON [Concomitant]
     Active Substance: ONDANSETRON
  7. AZITHROMYCIN [Concomitant]
     Active Substance: AZITHROMYCIN ANHYDROUS
  8. PREDNISONE. [Concomitant]
     Active Substance: PREDNISONE
  9. METFORMIN [Concomitant]
     Active Substance: METFORMIN HYDROCHLORIDE

REACTIONS (3)
  - Drug interaction [None]
  - Pneumothorax [None]
  - Dyspnoea [None]

NARRATIVE: CASE EVENT DATE: 20150602
